FAERS Safety Report 25402315 (Version 1)
Quarter: 2025Q2

REPORT INFORMATION
  Report Type: Spontaneous
  Country: IN (occurrence: IN)
  Receive Date: 20250605
  Receipt Date: 20250605
  Transmission Date: 20250716
  Serious: Yes (Hospitalization)
  Sender: BEXIMCO PHARMACEUTICALS
  Company Number: IN-BEXIMCO-2025BEX00035

PATIENT
  Age: 68 Year
  Sex: Male

DRUGS (1)
  1. BACLOFEN [Suspect]
     Active Substance: BACLOFEN
     Indication: Hiccups
     Dosage: 20 MG, 1X/DAY

REACTIONS (3)
  - Toxic encephalopathy [Recovering/Resolving]
  - Rebound psychosis [Recovering/Resolving]
  - Toxicity to various agents [Unknown]
